FAERS Safety Report 9668438 (Version 2)
Quarter: 2013Q4

REPORT INFORMATION
  Report Type: Spontaneous
  Country: US (occurrence: US)
  Receive Date: 20131105
  Receipt Date: 20131105
  Transmission Date: 20140711
  Serious: Yes (Hospitalization, Other)
  Sender: FDA-Public Use
  Company Number: US-PFIZER INC-2013137430

PATIENT
  Age: 63 Year
  Sex: Female
  Weight: 67.12 kg

DRUGS (7)
  1. LYRICA [Suspect]
     Indication: FIBROMYALGIA
     Dosage: 100 MG, 1X/DAY
     Route: 048
     Dates: start: 2012, end: 2013
  2. PREMARIN [Suspect]
     Dosage: 0.625 MG, UNK
     Route: 067
     Dates: end: 2013
  3. PROTONIX [Suspect]
     Indication: GASTROOESOPHAGEAL REFLUX DISEASE
     Dosage: 40 MG, 1X/DAY
     Dates: end: 2013
  4. LEVOTHYROXINE [Concomitant]
     Indication: HYPOTHYROIDISM
     Dosage: UNK
  5. FOLIC ACID [Concomitant]
     Dosage: UNK
  6. VITAMIN B12 [Concomitant]
     Indication: VITAMIN B12 DEFICIENCY
     Dosage: UNK, 1X/MONTH
  7. LORAZEPAM [Concomitant]
     Dosage: UNK

REACTIONS (3)
  - Colon cancer [Unknown]
  - Anal cancer [Unknown]
  - Fibromyalgia [Unknown]
